FAERS Safety Report 9176083 (Version 1)
Quarter: 2013Q1

REPORT INFORMATION
  Report Type: Spontaneous
  Country: US (occurrence: US)
  Receive Date: 20130318
  Receipt Date: 20130318
  Transmission Date: 20140127
  Serious: Yes (Other)
  Sender: FDA-Public Use
  Company Number: US-RB-045561-12

PATIENT
  Age: 28 Year
  Sex: Female

DRUGS (5)
  1. SUBOXONE TABLETS [Suspect]
     Indication: DRUG DEPENDENCE
     Route: 060
     Dates: start: 200907, end: 2010
  2. SUBUTEX [Suspect]
     Indication: DRUG DEPENDENCE
     Route: 060
     Dates: start: 2010, end: 20100813
  3. ZOLOFT [Concomitant]
     Indication: DEPRESSION
     Dosage: 50 MG
     Route: 065
  4. PRENATAL VITAMINS [Concomitant]
     Indication: PREGNANCY
     Dosage: ONE DAILY
     Route: 065
  5. NICOTINE [Concomitant]
     Indication: NICOTINE DEPENDENCE
     Dosage: DOSAGE DETAILS UNKNOWN
     Route: 065

REACTIONS (2)
  - Anencephaly [Recovered/Resolved]
  - Exposure during pregnancy [Recovered/Resolved]
